FAERS Safety Report 6518939-X (Version None)
Quarter: 2009Q4

REPORT INFORMATION
  Report Type: 
  Country: None (occurrence: None)
  Receive Date: 20091228
  Receipt Date: 20091215
  Transmission Date: 20100525
  Serious: Yes (Other)
  Sender: FDA-Public Use
  Company Number: US-SANOFI-AVENTIS-2009SA009383

PATIENT
  Age: 69 Year
  Sex: Female

DRUGS (13)
  1. MULTAQ [Suspect]
     Indication: ATRIAL FIBRILLATION
     Route: 048
     Dates: start: 20091014
  2. COREG [Suspect]
     Route: 048
     Dates: start: 20091014
  3. CARDIZEM [Suspect]
     Route: 048
     Dates: start: 20091014
  4. BENICAR [Suspect]
     Route: 048
     Dates: start: 20091014
  5. MAG-OX [Concomitant]
  6. GLUCOSAMINE [Concomitant]
  7. CRESTOR [Concomitant]
  8. ACTOS [Concomitant]
  9. INSULIN [Concomitant]
  10. COENZYME Q10 [Concomitant]
  11. MAXZIDE [Concomitant]
     Route: 048
  12. COUMADIN [Concomitant]
  13. ASPIRIN [Concomitant]

REACTIONS (10)
  - ABDOMINAL PAIN [None]
  - ATRIAL FIBRILLATION [None]
  - BLOOD POTASSIUM ABNORMAL [None]
  - BRADYCARDIA [None]
  - DIARRHOEA [None]
  - ECONOMIC PROBLEM [None]
  - MALAISE [None]
  - OEDEMA PERIPHERAL [None]
  - RHINORRHOEA [None]
  - WHEEZING [None]
